FAERS Safety Report 8523239-2 (Version None)
Quarter: 2012Q3

REPORT INFORMATION
  Report Type: 
  Country: None (occurrence: None)
  Receive Date: 20120720
  Receipt Date: 20120712
  Transmission Date: 20120928
  Serious: Yes (Hospitalization)
  Sender: FDA-Public Use
  Company Number: US-BAYER-2012-070528

PATIENT
  Age: 21 Year
  Sex: Female
  Weight: 116.1 kg

DRUGS (8)
  1. IBUPROFEN [Concomitant]
     Dosage: UNK
  2. CIPROFLOXACIN [Concomitant]
  3. DROSPIRENONE AND ETHINYL ESTRADIOL [Suspect]
     Dosage: UNK
  4. TYLENOL COLD MULTI-SYMPTOM SEVERE [Concomitant]
     Dosage: UNK
  5. MILK OF MAGNESIA TAB [Concomitant]
     Dosage: UNK
  6. YASMIN [Suspect]
  7. LEVAQUIN [Concomitant]
     Dosage: UNK
  8. OXYCODONE HCL [Concomitant]
     Dosage: UNK

REACTIONS (1)
  - PULMONARY EMBOLISM [None]
